FAERS Safety Report 6568213-0 (Version None)
Quarter: 2010Q1

REPORT INFORMATION
  Report Type: 
  Country: None (occurrence: None)
  Receive Date: 20100128
  Receipt Date: 20100113
  Transmission Date: 20100710
  Serious: Yes (Hospitalization)
  Sender: FDA-Public Use
  Company Number: IDA-00324

PATIENT
  Age: 79 Year
  Sex: Female

DRUGS (3)
  1. PROPRANOLOL [Suspect]
     Dosage: ORAL
     Route: 048
     Dates: start: 20040101
  2. ATACAND [Suspect]
     Indication: HYPERTENSION
     Dosage: .5 DF DAILY, ORAL, TABLET
     Route: 048
     Dates: start: 20080101, end: 20100101
  3. LIMBITROL (AMITRIPTYLINE, CHLORDIAZEPOXIDE) [Concomitant]

REACTIONS (4)
  - ASTHENIA [None]
  - DIZZINESS [None]
  - NAUSEA [None]
  - TACHYCARDIA [None]
